FAERS Safety Report 8862314 (Version 2)
Quarter: 2012Q4

REPORT INFORMATION
  Report Type: 
  Country: RU (occurrence: RU)
  Receive Date: 20121026
  Receipt Date: 20121210
  Transmission Date: 20130627
  Serious: Yes (Death, Hospitalization)
  Sender: FDA-Public Use
  Company Number: RU-JNJFOC-20121007097

PATIENT
  Age: 75 Year
  Sex: Male
  Weight: 73 kg

DRUGS (12)
  1. XARELTO [Suspect]
     Indication: CEREBROVASCULAR ACCIDENT PROPHYLAXIS
     Route: 048
     Dates: start: 20120919, end: 20120927
  2. XARELTO [Suspect]
     Indication: ATRIAL FIBRILLATION
     Route: 048
     Dates: start: 20120919, end: 20120927
  3. ACTOVEGIN [Suspect]
     Indication: HYPERTENSION
     Route: 065
     Dates: start: 20120914
  4. ACTOVEGIN [Suspect]
     Indication: MITRAL VALVE PROLAPSE
     Route: 065
     Dates: start: 20120914
  5. INDAPAMIDE [Suspect]
     Indication: PERIPHERAL ARTERIAL OCCLUSIVE DISEASE
     Route: 065
     Dates: start: 20120914
  6. MAGNESIUM SULFATE [Suspect]
     Indication: PERIPHERAL ARTERIAL OCCLUSIVE DISEASE
     Route: 065
  7. ATORVASTATIN [Suspect]
     Indication: PRODUCT USED FOR UNKNOWN INDICATION
     Route: 065
  8. CERAXON [Suspect]
     Indication: HYPERTENSION
     Dates: start: 20120914
  9. CERAXON [Suspect]
     Indication: MITRAL VALVE PROLAPSE
     Dates: start: 20120914
  10. OMEPRAZOLE [Suspect]
     Indication: PRODUCT USED FOR UNKNOWN INDICATION
     Route: 065
     Dates: start: 20120914
  11. CITICOLINE [Suspect]
     Indication: HYPERTENSION
     Route: 065
     Dates: start: 20120914
  12. CITICOLINE [Suspect]
     Indication: MITRAL VALVE PROLAPSE
     Route: 065
     Dates: start: 20120914

REACTIONS (2)
  - Ischaemic stroke [Fatal]
  - Haemorrhoidal haemorrhage [Recovered/Resolved]
